FAERS Safety Report 11257786 (Version 1)
Quarter: 2015Q3

REPORT INFORMATION
  Report Type: Report from Study
  Country: US (occurrence: US)
  Receive Date: 20150710
  Receipt Date: 20150710
  Transmission Date: 20151125
  Serious: No
  Sender: FDA-Public Use
  Company Number: US-ABBVIE-15P-163-1399244-00

PATIENT
  Age: 56 Year
  Sex: Female

DRUGS (1)
  1. DUOPA [Suspect]
     Active Substance: CARBIDOPA\LEVODOPA
     Indication: PARKINSON^S DISEASE
     Dosage: 24 HOURS DAILY
     Route: 050
     Dates: start: 20150420

REACTIONS (9)
  - Neck pain [Unknown]
  - Myalgia [Recovered/Resolved]
  - Stoma site haemorrhage [Unknown]
  - Paraesthesia [Not Recovered/Not Resolved]
  - Device difficult to use [Unknown]
  - Muscle rigidity [Recovered/Resolved]
  - Spinal pain [Unknown]
  - Device alarm issue [Recovered/Resolved]
  - Device issue [Unknown]

NARRATIVE: CASE EVENT DATE: 201505
